FAERS Safety Report 19974612 (Version 1)
Quarter: 2021Q4

REPORT INFORMATION
  Report Type: Spontaneous
  Country: FR (occurrence: FR)
  Receive Date: 20211020
  Receipt Date: 20211020
  Transmission Date: 20220303
  Serious: Yes (Other)
  Sender: FDA-Public Use
  Company Number: None

PATIENT
  Age: 47 Year
  Sex: Female
  Weight: 75 kg

DRUGS (27)
  1. METHOTREXATE [Suspect]
     Active Substance: METHOTREXATE
     Indication: Acute lymphocytic leukaemia
     Dosage: 15 MG
     Route: 037
     Dates: start: 20210806, end: 20210806
  2. METHOTREXATE [Suspect]
     Active Substance: METHOTREXATE
     Dosage: 15 MG
     Route: 037
     Dates: start: 20210729, end: 20210729
  3. METHOTREXATE [Suspect]
     Active Substance: METHOTREXATE
     Dosage: 15 MG
     Route: 037
     Dates: start: 20210810, end: 20210810
  4. METHOTREXATE [Suspect]
     Active Substance: METHOTREXATE
     Dosage: 15 MG
     Route: 037
     Dates: start: 20210824, end: 20210824
  5. METHOTREXATE [Suspect]
     Active Substance: METHOTREXATE
     Dosage: 15 MG
     Route: 037
     Dates: start: 20210820, end: 20210820
  6. METHOTREXATE [Suspect]
     Active Substance: METHOTREXATE
     Dosage: 15 MG
     Route: 037
     Dates: start: 20210827, end: 20210827
  7. METHOTREXATE [Suspect]
     Active Substance: METHOTREXATE
     Dosage: 15 MG
     Route: 037
     Dates: start: 20210817, end: 20210817
  8. METHOTREXATE [Suspect]
     Active Substance: METHOTREXATE
     Dosage: 15 MG
     Route: 037
     Dates: start: 20210802, end: 20210802
  9. METHOTREXATE [Suspect]
     Active Substance: METHOTREXATE
     Dosage: 15 MG
     Route: 037
     Dates: start: 20210804, end: 20210804
  10. METHOTREXATE [Suspect]
     Active Substance: METHOTREXATE
     Dosage: 15 MG
     Route: 037
     Dates: start: 20210731, end: 20210731
  11. ETOPOSIDE [Suspect]
     Active Substance: ETOPOSIDE
     Indication: Acute lymphocytic leukaemia
     Dosage: 192 MG
     Route: 041
     Dates: start: 20210916, end: 20210920
  12. ETOPOSIDE [Suspect]
     Active Substance: ETOPOSIDE
     Dosage: 188 MG
     Route: 041
     Dates: start: 20210806, end: 20210810
  13. ATRIANCE [Suspect]
     Active Substance: NELARABINE
     Indication: Acute lymphocytic leukaemia
     Dosage: 2790 MG
     Route: 041
     Dates: start: 20210811, end: 20210811
  14. ATRIANCE [Suspect]
     Active Substance: NELARABINE
     Dosage: 2790 MG
     Route: 041
     Dates: start: 20210813, end: 20210813
  15. ATRIANCE [Suspect]
     Active Substance: NELARABINE
     Dosage: 2790 MG
     Route: 041
     Dates: start: 20210816, end: 20210816
  16. CYTARABINE [Suspect]
     Active Substance: CYTARABINE
     Indication: Acute lymphocytic leukaemia
     Dosage: 40 MG
     Route: 037
     Dates: start: 20210810, end: 20210810
  17. CYTARABINE [Suspect]
     Active Substance: CYTARABINE
     Dosage: 40 MG
     Route: 037
     Dates: start: 20210804, end: 20210804
  18. CYTARABINE [Suspect]
     Active Substance: CYTARABINE
     Dosage: 40 MG
     Route: 037
     Dates: start: 20210729, end: 20210729
  19. CYTARABINE [Suspect]
     Active Substance: CYTARABINE
     Dosage: 40 MG
     Route: 037
     Dates: start: 20210802, end: 20210802
  20. CYTARABINE [Suspect]
     Active Substance: CYTARABINE
     Dosage: 40 MG
     Route: 037
     Dates: start: 20210731, end: 20210731
  21. CYTARABINE [Suspect]
     Active Substance: CYTARABINE
     Dosage: 40 MG
     Route: 037
     Dates: start: 20210817, end: 20210817
  22. CYTARABINE [Suspect]
     Active Substance: CYTARABINE
     Dosage: 40 MG
     Route: 037
     Dates: start: 20210820, end: 20210820
  23. CYTARABINE [Suspect]
     Active Substance: CYTARABINE
     Dosage: 40 MG
     Route: 037
     Dates: start: 20210827, end: 20210827
  24. CYTARABINE [Suspect]
     Active Substance: CYTARABINE
     Dosage: 40 MG
     Route: 037
     Dates: start: 20210824, end: 20210824
  25. CYTARABINE [Suspect]
     Active Substance: CYTARABINE
     Dosage: 40 MG
     Route: 037
     Dates: start: 20210806, end: 20210806
  26. CYCLOPHOSPHAMIDE [Suspect]
     Active Substance: CYCLOPHOSPHAMIDE
     Indication: Acute lymphocytic leukaemia
     Dosage: 780 MG
     Route: 041
     Dates: start: 20210916, end: 20210920
  27. CYCLOPHOSPHAMIDE [Suspect]
     Active Substance: CYCLOPHOSPHAMIDE
     Dosage: 820 MG
     Route: 041
     Dates: start: 20210806, end: 20210810

REACTIONS (1)
  - Subacute combined cord degeneration [Not Recovered/Not Resolved]

NARRATIVE: CASE EVENT DATE: 20210904
